FAERS Safety Report 10855170 (Version 7)
Quarter: 2016Q1

REPORT INFORMATION
  Report Type: Report from Study
  Country: US (occurrence: US)
  Receive Date: 20150223
  Receipt Date: 20160114
  Transmission Date: 20160525
  Serious: Yes (Other)
  Sender: FDA-Public Use
  Company Number: US-SA-2013SA123077

PATIENT
  Age: 65 Year
  Sex: Female

DRUGS (10)
  1. TYSABRI [Concomitant]
     Active Substance: NATALIZUMAB
     Indication: BLOOD DISORDER
     Dosage: FREQUENCY: EVERY 28 DAYS
     Route: 042
     Dates: start: 2011
  2. AMBIEN [Concomitant]
     Active Substance: ZOLPIDEM TARTRATE
     Indication: SLEEP DISORDER
  3. AUBAGIO [Suspect]
     Active Substance: TERIFLUNOMIDE
     Indication: MULTIPLE SCLEROSIS
     Route: 048
  4. ULTRACET [Concomitant]
     Active Substance: ACETAMINOPHEN\TRAMADOL HYDROCHLORIDE
  5. BOTOX [Concomitant]
     Active Substance: ONABOTULINUMTOXINA
  6. COPAXONE [Concomitant]
     Active Substance: GLATIRAMER ACETATE
     Indication: SKIN DISORDER
     Dosage: SINCE 20 YEARS
  7. AUBAGIO [Suspect]
     Active Substance: TERIFLUNOMIDE
     Indication: MULTIPLE SCLEROSIS
     Route: 048
     Dates: start: 20131101
  8. TIZANIDINE. [Concomitant]
     Active Substance: TIZANIDINE
  9. AUBAGIO [Suspect]
     Active Substance: TERIFLUNOMIDE
     Indication: MULTIPLE SCLEROSIS
     Route: 048
     Dates: start: 20131101
  10. LYSINE [Concomitant]
     Active Substance: LYSINE

REACTIONS (20)
  - Oral herpes [Recovered/Resolved]
  - Oral pain [Unknown]
  - Gingival pain [Unknown]
  - Alopecia [Unknown]
  - Hypokinesia [Unknown]
  - Mental disorder [Unknown]
  - Muscle tightness [Unknown]
  - Drug dose omission [Unknown]
  - Fatigue [Unknown]
  - Head discomfort [Unknown]
  - Gingival abscess [Unknown]
  - Pruritus [Recovered/Resolved]
  - Apathy [Not Recovered/Not Resolved]
  - Energy increased [Unknown]
  - Oropharyngeal pain [Unknown]
  - Memory impairment [Unknown]
  - Nuclear magnetic resonance imaging abnormal [Unknown]
  - Nasopharyngitis [Unknown]
  - Mouth swelling [Unknown]
  - Memory impairment [Not Recovered/Not Resolved]

NARRATIVE: CASE EVENT DATE: 2013
